FAERS Safety Report 6801317-3 (Version None)
Quarter: 2010Q2

REPORT INFORMATION
  Report Type: 
  Country: None (occurrence: None)
  Receive Date: 20100629
  Receipt Date: 20100618
  Transmission Date: 20101027
  Serious: Yes (Hospitalization)
  Sender: FDA-Public Use
  Company Number: JP-ROCHE-699902

PATIENT
  Sex: Female

DRUGS (10)
  1. AVASTIN [Suspect]
     Indication: LARGE INTESTINE CARCINOMA
     Route: 041
     Dates: start: 20081219, end: 20100413
  2. IRINOTECAN HYDROCHLORIDE [Suspect]
     Indication: LARGE INTESTINE CARCINOMA
     Route: 041
     Dates: start: 20090507
  3. ZOMETA [Suspect]
     Indication: METASTASES TO BONE
     Route: 041
  4. ELPLAT [Concomitant]
     Dosage: ACTION TAKEN: NOT APPLICABLE
     Route: 041
     Dates: start: 20081219
  5. FLUOROURACIL [Concomitant]
     Indication: LARGE INTESTINE CARCINOMA
     Dosage: ROUTE- INTRAVENOUS BOLUS, ACTION TAKEN: NOT APPLICABLE
     Route: 042
     Dates: start: 20081219
  6. FLUOROURACIL [Concomitant]
     Dosage: ROUTE- INTRAVENOUS DRIP, ACTION TAKEN: NOT APPLICABLE
     Route: 042
     Dates: start: 20081219
  7. FLUOROURACIL [Concomitant]
     Dosage: ROUTE- INTRAVENOUS BOLUS
     Route: 042
     Dates: start: 20090507
  8. FLUOROURACIL [Concomitant]
     Dosage: ROUTE- INTRAVENOUS DRIP, ACTION TAKEN: NOT APPLICABLE
     Route: 042
     Dates: start: 20090507
  9. CALCIUM LEVOFOLINATE [Concomitant]
     Dosage: ACTION TAKEN: NOT APPLICABLE
     Route: 041
     Dates: start: 20081219
  10. CALCIUM LEVOFOLINATE [Concomitant]
     Dosage: ACTION TAKEN: NOT APPLICABLE
     Route: 041
     Dates: start: 20090507

REACTIONS (1)
  - RENAL FAILURE ACUTE [None]
